FAERS Safety Report 15359551 (Version 2)
Quarter: 2024Q2

REPORT INFORMATION
  Report Type: Other
  Country: HU (occurrence: HU)
  Receive Date: 20180907
  Receipt Date: 20240619
  Transmission Date: 20240716
  Serious: Yes (Congenital Anomaly, Other)
  Sender: FDA-Public Use
  Company Number: None

PATIENT

DRUGS (18)
  1. PANTOPRAZOLE [Suspect]
     Active Substance: PANTOPRAZOLE
     Indication: Product used for unknown indication
     Dosage: UNK, MOTHER DOSE: 40 MG, UNK
     Route: 064
  2. METOPROLOL [Suspect]
     Active Substance: METOPROLOL
     Indication: Product used for unknown indication
     Dosage: UNK
     Route: 064
  3. PROPYLTHIOURACIL [Suspect]
     Active Substance: PROPYLTHIOURACIL
     Indication: Product used for unknown indication
     Dosage: UNK
     Route: 064
  4. AMPICILLIN [Suspect]
     Active Substance: AMPICILLIN
     Indication: Product used for unknown indication
     Dosage: UNK, MOTHER DOSE: 2 G, Q4H
     Route: 064
  5. DIGOXIN [Suspect]
     Active Substance: DIGOXIN
     Indication: Product used for unknown indication
     Dosage: UNK
     Route: 064
  6. ENOXAPARIN SODIUM [Suspect]
     Active Substance: ENOXAPARIN SODIUM
     Indication: Product used for unknown indication
     Dosage: UNK
     Route: 064
  7. EPHEDRINE [Suspect]
     Active Substance: EPHEDRINE
     Indication: Product used for unknown indication
     Dosage: UNK, MOTHER DOSE: 5 MG, 3 TIMES INTRAVENOUS, 5 MG, 11 TIMES   INTRAVENOUS , 25 MG/H, UNK, INFUSION
     Route: 064
  8. EPINEPHRINE [Suspect]
     Active Substance: EPINEPHRINE
     Indication: Product used for unknown indication
     Dosage: UNK, MOTHER DOSE: 5 MG
     Route: 064
  9. HEPARIN [Suspect]
     Active Substance: HEPARIN SODIUM
     Indication: Product used for unknown indication
     Dosage: UNK, MOTHER DOSE: 20 IU, UNK, 10 IU, UNK
     Route: 064
  10. ISOFLURANE [Suspect]
     Active Substance: ISOFLURANE
     Indication: Product used for unknown indication
     Dosage: UNK, MOTHER DOSE: 0.5-1.0 %
     Route: 064
  11. MAGNESIUM [Suspect]
     Active Substance: MAGNESIUM
     Indication: Product used for unknown indication
     Dosage: UNK, MOTHER DOSE: 2-1.5 UG/ML,  2 X 1G BOLUS, 1G
     Route: 064
  12. MIDAZOLAM [Suspect]
     Active Substance: MIDAZOLAM
     Indication: Product used for unknown indication
     Dosage: UNK, MOTHER DOSE: 7.5 MG, UNK, ORAL, 5 MG, UNK
     Route: 064
  13. PENAMECILLIN [Suspect]
     Active Substance: PENAMECILLIN
     Indication: Foetal exposure during pregnancy
     Dosage: UNK
     Route: 064
  14. PIPECURONIUM [Suspect]
     Active Substance: PIPECURONIUM
     Indication: Product used for unknown indication
     Dosage: UNK, MOTHER DOSE: 4 MG
     Route: 064
  15. PROPOFOL [Suspect]
     Active Substance: PROPOFOL
     Indication: Product used for unknown indication
     Dosage: UNK, MOTHER DOSE: 2-1.5 UG/ML, IV DRIP
     Route: 064
  16. PROTAMINE SULFATE [Suspect]
     Active Substance: PROTAMINE SULFATE
     Indication: Foetal exposure during pregnancy
     Dosage: UNK, MOTHER DOSE: 200 MG,
     Route: 064
  17. SEVOFLURANE [Suspect]
     Active Substance: SEVOFLURANE
     Indication: Product used for unknown indication
     Dosage: UNK, MOTHER DOSE: 1.5-2.0 %
     Route: 064
  18. SUFENTANIL [Suspect]
     Active Substance: SUFENTANIL
     Indication: Product used for unknown indication
     Dosage: UNK, MOTHER DOSE: 10 UG,
     Route: 064

REACTIONS (6)
  - Congenital clavicular agenesis [Unknown]
  - Syndactyly [Unknown]
  - Adrenal insufficiency [Unknown]
  - Dysmorphism [Unknown]
  - Hypoglycaemia [Unknown]
  - Foetal exposure during pregnancy [Unknown]
